FAERS Safety Report 20051255 (Version 2)
Quarter: 2021Q4

REPORT INFORMATION
  Report Type: Other
  Country: US (occurrence: US)
  Receive Date: 20211110
  Receipt Date: 20211217
  Transmission Date: 20220303
  Serious: No
  Sender: FDA-Public Use
  Company Number: US-NEUROCRINE BIOSCIENCES INC.-2021NBI06348

PATIENT

DRUGS (8)
  1. INGREZZA [Suspect]
     Active Substance: VALBENAZINE
     Indication: Tardive dyskinesia
     Dosage: (40/80MG)120 MILLIGRAM, QD
     Route: 048
     Dates: start: 20210921
  2. INGREZZA [Suspect]
     Active Substance: VALBENAZINE
     Dosage: 40 MILLIGRAM, QD
     Route: 048
  3. INGREZZA [Suspect]
     Active Substance: VALBENAZINE
     Dosage: 80 MILLIGRAM, QD, DAILY
     Route: 048
     Dates: start: 20211011, end: 20211025
  4. CLOZAPINE [Concomitant]
     Active Substance: CLOZAPINE
     Indication: Psychotic symptom
     Dosage: 200 MILLIGRAM, QHS
     Route: 048
     Dates: start: 202012
  5. CLOZAPINE [Concomitant]
     Active Substance: CLOZAPINE
     Indication: Depression
  6. DEPAKOTE ER [Concomitant]
     Active Substance: DIVALPROEX SODIUM
     Indication: Affective disorder
     Dosage: 1500 MILLIGRAM, QHS
     Route: 048
     Dates: start: 2018
  7. ESCITALOPRAM [Concomitant]
     Active Substance: ESCITALOPRAM OXALATE
     Indication: Depression
     Dosage: 10 MILLIGRAM, QD
     Route: 048
     Dates: start: 2017
  8. KLONOPIN [Concomitant]
     Active Substance: CLONAZEPAM
     Indication: Anxiety
     Dosage: 0.5 MILLIGRAM, QD
     Route: 048
     Dates: start: 2018

REACTIONS (3)
  - Akathisia [Recovered/Resolved]
  - Drug ineffective [Unknown]
  - Prescribed overdose [Unknown]

NARRATIVE: CASE EVENT DATE: 20210101
